FAERS Safety Report 7030407 (Version 2)
Quarter: 2018Q1

REPORT INFORMATION
  Report Type: Spontaneous
  Country: US (occurrence: US)
  Receive Date: 20090623
  Receipt Date: 20180330
  Transmission Date: 20180509
  Serious: No
  Sender: FDA-Public Use
  Company Number: US-ASTRAZENECA-2008UW10242

PATIENT
  Age: 799 Month
  Sex: Female
  Weight: 49.9 kg

DRUGS (3)
  1. NIASPAN [Concomitant]
     Active Substance: NIACIN
  2. BEVESPI AEROSPHERE [Suspect]
     Active Substance: FORMOTEROL FUMARATE\GLYCOPYRROLATE
     Indication: CHRONIC OBSTRUCTIVE PULMONARY DISEASE
     Dosage: 9/4.8MCG TWO INHALATIONS TWICE DAILY
     Route: 055
     Dates: start: 201801
  3. PULMICORT FLEXHALER [Suspect]
     Active Substance: BUDESONIDE
     Indication: CHRONIC OBSTRUCTIVE PULMONARY DISEASE
     Dosage: 180 MCG, 2 PUFFS, TWO TIMES A DAY
     Route: 055
     Dates: start: 200804, end: 200806

REACTIONS (6)
  - Dizziness [Unknown]
  - Pain [Unknown]
  - Lip swelling [Unknown]
  - Arthralgia [Unknown]
  - Throat irritation [Unknown]
  - Circumstance or information capable of leading to medication error [Unknown]

NARRATIVE: CASE EVENT DATE: 200805
